FAERS Safety Report 9862395 (Version 1)
Quarter: 2014Q1

REPORT INFORMATION
  Report Type: Spontaneous
  Country: US (occurrence: None)
  Receive Date: 20140130
  Receipt Date: 20140130
  Transmission Date: 20141002
  Serious: Yes (Death)
  Sender: FDA-Public Use
  Company Number: 2014AP000686

PATIENT
  Age: 42 Year
  Sex: Female

DRUGS (3)
  1. CARBAMAZEPINE [Suspect]
  2. FLUOXETINE HYDROCHLORIDE ORAL SOLUTION [Suspect]
  3. HEROIN [Suspect]

REACTIONS (1)
  - Death [None]
